FAERS Safety Report 12731206 (Version 1)
Quarter: 2016Q3

REPORT INFORMATION
  Report Type: Spontaneous
  Country: US (occurrence: US)
  Receive Date: 20160912
  Receipt Date: 20160912
  Transmission Date: 20161109
  Serious: No
  Sender: FDA-Public Use
  Company Number: US-ASTRAZENECA-2016SE77237

PATIENT
  Age: 712 Month
  Sex: Male
  Weight: 100.7 kg

DRUGS (1)
  1. BYDUREON [Suspect]
     Active Substance: EXENATIDE
     Indication: TYPE 2 DIABETES MELLITUS
     Route: 058
     Dates: start: 2016

REACTIONS (4)
  - Diplopia [Unknown]
  - Weight decreased [Unknown]
  - Intentional product misuse [Unknown]
  - Asthenopia [Unknown]

NARRATIVE: CASE EVENT DATE: 201603
